FAERS Safety Report 17124102 (Version 1)
Quarter: 2019Q4

REPORT INFORMATION
  Report Type: Spontaneous
  Country: FR (occurrence: FR)
  Receive Date: 20191206
  Receipt Date: 20191206
  Transmission Date: 20200122
  Serious: Yes (Other)
  Sender: FDA-Public Use
  Company Number: FR-MYLANLABS-2019M1119476

PATIENT
  Age: 7 Year
  Sex: Male
  Weight: 32 kg

DRUGS (1)
  1. ETOPOSIDE MYLAN [Suspect]
     Active Substance: ETOPOSIDE
     Indication: BONE MARROW TRANSPLANT
     Dosage: 1900 MICROGRAM, QD
     Route: 041
     Dates: start: 20190713, end: 20190713

REACTIONS (2)
  - Hypotension [Recovered/Resolved]
  - Acute kidney injury [Not Recovered/Not Resolved]

NARRATIVE: CASE EVENT DATE: 20190713
